FAERS Safety Report 6603125-5 (Version None)
Quarter: 2010Q1

REPORT INFORMATION
  Report Type: 
  Country: None (occurrence: None)
  Receive Date: 20100226
  Receipt Date: 20100217
  Transmission Date: 20100710
  Serious: Yes (Hospitalization)
  Sender: FDA-Public Use
  Company Number: US-JNJFOC-20100208075

PATIENT
  Sex: Male

DRUGS (2)
  1. REMICADE [Suspect]
     Indication: COLITIS ULCERATIVE
     Route: 042
  2. REMICADE [Suspect]
     Route: 042

REACTIONS (5)
  - BILE DUCT T-TUBE INSERTION [None]
  - BLOOD BILIRUBIN INCREASED [None]
  - CHOLECYSTECTOMY [None]
  - HEPATIC ENZYME INCREASED [None]
  - STENT PLACEMENT [None]
